FAERS Safety Report 18114802 (Version 9)
Quarter: 2022Q2

REPORT INFORMATION
  Report Type: Spontaneous
  Country: US (occurrence: US)
  Receive Date: 20200805
  Receipt Date: 20220518
  Transmission Date: 20220721
  Serious: No
  Sender: FDA-Public Use
  Company Number: US-PFIZER INC-2020295048

PATIENT
  Age: 71 Year
  Sex: Female
  Weight: 83.91 kg

DRUGS (4)
  1. TIKOSYN [Suspect]
     Active Substance: DOFETILIDE
     Indication: Cardiac disorder
     Dosage: 0.25 MG
     Dates: start: 2017
  2. TIKOSYN [Suspect]
     Active Substance: DOFETILIDE
     Indication: Arrhythmia
  3. TIKOSYN [Suspect]
     Active Substance: DOFETILIDE
     Indication: Atrial fibrillation
  4. TIKOSYN [Suspect]
     Active Substance: DOFETILIDE
     Indication: Arrhythmia

REACTIONS (2)
  - Memory impairment [Unknown]
  - Intentional product use issue [Unknown]
